FAERS Safety Report 4594060-5 (Version None)
Quarter: 2005Q1

REPORT INFORMATION
  Report Type: 
  Country: None (occurrence: None)
  Receive Date: 20050301
  Receipt Date: 20050218
  Transmission Date: 20050727
  Serious: Yes (Hospitalization)
  Sender: FDA-Public Use
  Company Number: US-MERCK-0502USA02409

PATIENT
  Age: 73 Year
  Sex: Female

DRUGS (1)
  1. VIOXX [Suspect]
     Route: 048
     Dates: start: 20020101, end: 20020101

REACTIONS (3)
  - ADVERSE EVENT [None]
  - CARDIAC DISORDER [None]
  - CORONARY ARTERY OCCLUSION [None]
